FAERS Safety Report 11220197 (Version 1)
Quarter: 2015Q2

REPORT INFORMATION
  Report Type: Spontaneous
  Country: US (occurrence: None)
  Receive Date: 20150624
  Receipt Date: 20150624
  Transmission Date: 20150821
  Serious: Yes (Life-Threatening, Hospitalization, Disabling)
  Sender: FDA-Public Use
  Company Number: None

PATIENT
  Age: 64 Year
  Sex: Male
  Weight: 90.72 kg

DRUGS (7)
  1. RILUZOLE. [Concomitant]
     Active Substance: RILUZOLE
  2. MYOBLOC [Suspect]
     Active Substance: RIMABOTULINUMTOXINB
     Indication: SALIVARY HYPERSECRETION
     Dates: start: 20150610, end: 20150610
  3. WELLBUTRIN [Concomitant]
     Active Substance: BUPROPION HYDROCHLORIDE
  4. INOSINE [Concomitant]
     Active Substance: INOSINE
  5. BACLOFEN. [Concomitant]
     Active Substance: BACLOFEN
  6. MESTINON [Concomitant]
     Active Substance: PYRIDOSTIGMINE BROMIDE
  7. NUEDEXTA [Concomitant]
     Active Substance: DEXTROMETHORPHAN HYDROBROMIDE\QUINIDINE SULFATE

REACTIONS (3)
  - Dysphagia [None]
  - Obstructive airways disorder [None]
  - Tongue paralysis [None]

NARRATIVE: CASE EVENT DATE: 20150612
